FAERS Safety Report 19987269 (Version 3)
Quarter: 2022Q2

REPORT INFORMATION
  Report Type: Spontaneous
  Country: CA (occurrence: CA)
  Receive Date: 20211022
  Receipt Date: 20220502
  Transmission Date: 20220721
  Serious: Yes (Other)
  Sender: FDA-Public Use
  Company Number: CA-PFIZER INC-202101392008

PATIENT
  Age: 78 Year
  Sex: Male

DRUGS (3)
  1. ENBREL [Suspect]
     Active Substance: ETANERCEPT
     Dosage: 1 DF
     Route: 065
     Dates: start: 2019, end: 2021
  2. METHOTREXATE SODIUM [Suspect]
     Active Substance: METHOTREXATE SODIUM
     Dosage: 1 DF
     Route: 065
     Dates: start: 1993, end: 2021
  3. METHOTREXATE SODIUM [Suspect]
     Active Substance: METHOTREXATE SODIUM
     Dosage: UNK
     Route: 065

REACTIONS (2)
  - Hepatic cirrhosis [Unknown]
  - Hepatic cancer [Unknown]
